FAERS Safety Report 5763924-9 (Version None)
Quarter: 2008Q2

REPORT INFORMATION
  Report Type: 
  Country: None (occurrence: None)
  Receive Date: 20080606
  Receipt Date: 20080606
  Transmission Date: 20081010
  Serious: Yes (Other)
  Sender: FDA-Public Use
  Company Number: None

PATIENT
  Age: 34 Year
  Sex: Male
  Weight: 118.3888 kg

DRUGS (2)
  1. VERAMYST FLUTICASONE FUROATE 27.5 MCG GLAXOSMITHKLINE [Suspect]
     Indication: NASAL CONGESTION
     Dosage: 2 SPRAYS IN EACH NOSTRIL DAILY INHAL
     Route: 055
     Dates: start: 20070730, end: 20080416
  2. VERAMYST FLUTICASONE FUROATE 27.5 MCG GLAXOSMITHKLINE [Suspect]

REACTIONS (1)
  - CATARACT [None]
